FAERS Safety Report 20455074 (Version 1)
Quarter: 2022Q1

REPORT INFORMATION
  Report Type: Report from Study
  Country: PE (occurrence: PE)
  Receive Date: 20220210
  Receipt Date: 20220210
  Transmission Date: 20220423
  Serious: Yes (Death)
  Sender: FDA-Public Use
  Company Number: PE-NOVARTISPH-NVSC2021PE241478

PATIENT
  Age: 58 Year
  Sex: Female
  Weight: 45 kg

DRUGS (1)
  1. KISQALI [Suspect]
     Active Substance: RIBOCICLIB
     Indication: Breast cancer metastatic
     Dosage: 600 MG, QD
     Route: 048
     Dates: start: 20201230

REACTIONS (14)
  - Death [Fatal]
  - Mood altered [Unknown]
  - Arthralgia [Unknown]
  - Chest pain [Unknown]
  - Depression [Unknown]
  - Decreased immune responsiveness [Unknown]
  - COVID-19 [Unknown]
  - Lung disorder [Unknown]
  - Vomiting [Unknown]
  - Dizziness [Unknown]
  - Bone pain [Unknown]
  - Spinal pain [Unknown]
  - Back pain [Unknown]
  - Product use issue [Unknown]

NARRATIVE: CASE EVENT DATE: 20211015
